FAERS Safety Report 7479099-4 (Version None)
Quarter: 2011Q2

REPORT INFORMATION
  Report Type: 
  Country: None (occurrence: None)
  Receive Date: 20110513
  Receipt Date: 20070924
  Transmission Date: 20111010
  Serious: Yes (Hospitalization, Other)
  Sender: FDA-Public Use
  Company Number: US-MERCK-0706USA04969

PATIENT
  Age: 54 Year
  Sex: Male
  Weight: 93 kg

DRUGS (6)
  1. AMBIEN [Concomitant]
     Route: 065
  2. AVANDIA [Concomitant]
     Route: 065
  3. REQUIP [Concomitant]
     Route: 065
  4. VYTORIN [Concomitant]
     Route: 048
  5. JANUVIA [Suspect]
     Indication: TYPE 2 DIABETES MELLITUS
     Route: 048
     Dates: start: 20070524, end: 20070626
  6. JANUVIA [Suspect]
     Route: 048
     Dates: start: 20070701

REACTIONS (1)
  - CELLULITIS [None]
